FAERS Safety Report 23379132 (Version 1)
Quarter: 2024Q1

REPORT INFORMATION
  Report Type: Spontaneous
  Country: US (occurrence: None)
  Receive Date: 20240107
  Receipt Date: 20240107
  Transmission Date: 20240410
  Serious: Yes (Other)
  Sender: FDA-Public Use
  Company Number: None

PATIENT
  Age: 53 Year
  Sex: Female

DRUGS (1)
  1. ADVAIR DISKUS [Suspect]
     Active Substance: FLUTICASONE PROPIONATE\SALMETEROL XINAFOATE
     Indication: Asthma
     Dosage: FREQUENCY : TWICE A DAY;?
     Route: 055

REACTIONS (3)
  - Wheezing [None]
  - Product supply issue [None]
  - Product use issue [None]

NARRATIVE: CASE EVENT DATE: 20240107
